FAERS Safety Report 4298725-4 (Version None)
Quarter: 2004Q1

REPORT INFORMATION
  Report Type: 
  Country: None (occurrence: None)
  Receive Date: 20040126
  Receipt Date: 20031028
  Transmission Date: 20041129
  Serious: No
  Sender: FDA-Public Use
  Company Number: USA031050976

PATIENT
  Age: 19 Year
  Sex: Male
  Weight: 68 kg

DRUGS (2)
  1. STRATTERA [Suspect]
     Indication: ATTENTION DEFICIT/HYPERACTIVITY DISORDER
     Dosage: 25 MG/DAY
     Dates: start: 20031007
  2. MULTI-VITAMIN [Concomitant]

REACTIONS (3)
  - DRUG INEFFECTIVE [None]
  - HUNGER [None]
  - RENAL PAIN [None]
